FAERS Safety Report 5307566-8 (Version None)
Quarter: 2007Q2

REPORT INFORMATION
  Report Type: 
  Country: None (occurrence: None)
  Receive Date: 20070425
  Receipt Date: 20070423
  Transmission Date: 20071010
  Serious: Yes (Hospitalization)
  Sender: FDA-Public Use
  Company Number: FRWYE518223APR07

PATIENT
  Sex: Female
  Weight: 13 kg

DRUGS (4)
  1. ADVIL [Suspect]
     Indication: PYREXIA
     Dosage: ADAPTED TO THE WEIGHT
     Route: 048
     Dates: start: 20070321, end: 20070325
  2. OMEPRAZOLE [Concomitant]
     Dosage: UNKNOWN
     Route: 048
     Dates: start: 20070324, end: 20070325
  3. ORELOX [Concomitant]
     Dosage: UNKNOWN
     Route: 048
     Dates: start: 20070324, end: 20070325
  4. ACETAMINOPHEN [Concomitant]
     Dosage: UNKNOWN
     Route: 048
     Dates: start: 20070321

REACTIONS (3)
  - ABDOMINAL PAIN [None]
  - CONSTIPATION [None]
  - LUNG DISORDER [None]
